FAERS Safety Report 9013855 (Version 1)
Quarter: 2013Q1

REPORT INFORMATION
  Report Type: Spontaneous
  Country: US (occurrence: US)
  Receive Date: 20130115
  Receipt Date: 20130115
  Transmission Date: 20140127
  Serious: No
  Sender: FDA-Public Use
  Company Number: US-ROXANE LABORATORIES, INC.-2013-RO-00035RO

PATIENT
  Sex: Female

DRUGS (3)
  1. CLARITHROMYCIN [Suspect]
     Indication: PNEUMONIA
     Route: 048
  2. ESTRADIOL [Concomitant]
  3. SYNTHROID [Concomitant]

REACTIONS (2)
  - Urticaria [Recovered/Resolved]
  - Bronchial disorder [Recovered/Resolved]
